FAERS Safety Report 4385658-8 (Version None)
Quarter: 2004Q2

REPORT INFORMATION
  Report Type: 
  Country: None (occurrence: None)
  Receive Date: 20040622
  Receipt Date: 20040617
  Transmission Date: 20050107
  Serious: Yes (Congenital Anomaly)
  Sender: FDA-Public Use
  Company Number: 04P-167-0246727-00

PATIENT
  Sex: Male

DRUGS (1)
  1. HUMIRA [Suspect]
     Dosage: 40 MG, 1 IN 2 WK, SUBCUTANEOUS
     Route: 058
     Dates: start: 20030410, end: 20030410

REACTIONS (2)
  - MATERNAL DRUGS AFFECTING FOETUS [None]
  - PILONIDAL CYST CONGENITAL [None]
